FAERS Safety Report 5460741-4 (Version None)
Quarter: 2007Q3

REPORT INFORMATION
  Report Type: 
  Country: None (occurrence: None)
  Receive Date: 20070919
  Receipt Date: 20070911
  Transmission Date: 20080115
  Serious: Yes (Other)
  Sender: FDA-Public Use
  Company Number: GB-MERCK-0709USA02143

PATIENT

DRUGS (8)
  1. DECADRON [Suspect]
     Indication: POSTOPERATIVE CARE
     Route: 048
  2. DECADRON [Suspect]
     Route: 048
  3. DECADRON [Suspect]
     Route: 048
  4. URSODIOL [Concomitant]
     Route: 048
  5. PHENOBARBITAL [Concomitant]
     Route: 048
  6. VITAMINS (UNSPECIFIED) [Concomitant]
     Route: 065
  7. RANITIDINE [Concomitant]
     Indication: PROPHYLAXIS
     Route: 048
  8. CEPHRADINE [Concomitant]
     Route: 048

REACTIONS (1)
  - ANASTOMOTIC LEAK [None]
